FAERS Safety Report 4562558-1 (Version None)
Quarter: 2005Q1

REPORT INFORMATION
  Report Type: 
  Country: None (occurrence: None)
  Receive Date: 20050124
  Receipt Date: 20050112
  Transmission Date: 20050727
  Serious: Yes (Hospitalization, Other)
  Sender: FDA-Public Use
  Company Number: HQWYE622026AUG04

PATIENT
  Age: 51 Year
  Sex: Female
  Weight: 79.9 kg

DRUGS (16)
  1. RAPAMUNE [Suspect]
     Indication: PROPHYLAXIS AGAINST TRANSPLANT REJECTION
     Dosage: 4 MG 1X PER 1 DAY, ORAL
     Route: 048
     Dates: start: 20040513, end: 20040719
  2. PREDNISONE [Suspect]
     Indication: IMMUNOSUPPRESSANT DRUG THERAPY
     Dosage: 10 MG 1X PER 1 DAY, ORAL
     Route: 048
  3. GENGRAF [Concomitant]
  4. NPH INSULIN [Concomitant]
  5. BACTRIM [Concomitant]
  6. VALCYTE [Concomitant]
  7. NIFEDIPINE [Concomitant]
  8. COLACE (DOCUSATE SODIUM) [Concomitant]
  9. ZANTAC [Concomitant]
  10. FOLIC ACID [Concomitant]
  11. LOPRESSOR [Concomitant]
  12. COZAAR [Concomitant]
  13. FERROUS SULFATE TAB [Concomitant]
  14. OS-CAL + D (CALCIUM CARBONATE/COLECALCIFEROL) [Concomitant]
  15. ACYCLOVIR [Concomitant]
  16. VERAPAMIL [Concomitant]

REACTIONS (9)
  - BLOOD SODIUM DECREASED [None]
  - HYPERGLYCAEMIA [None]
  - IMMUNOSUPPRESSION [None]
  - IMPAIRED HEALING [None]
  - PURULENT DISCHARGE [None]
  - RETROPERITONEAL ABSCESS [None]
  - SPECIFIC GRAVITY URINE INCREASED [None]
  - UROBILIN URINE PRESENT [None]
  - WOUND INFECTION [None]
